FAERS Safety Report 7836747-4 (Version None)
Quarter: 2011Q4

REPORT INFORMATION
  Report Type: 
  Country: None (occurrence: None)
  Receive Date: 20111024
  Receipt Date: 20111014
  Transmission Date: 20120403
  Serious: Yes (Hospitalization)
  Sender: FDA-Public Use
  Company Number: IT-ASTRAZENECA-2011SE62018

PATIENT
  Age: 24063 Day
  Sex: Male

DRUGS (12)
  1. MAG 2 [Concomitant]
  2. NOROXIN [Concomitant]
     Route: 048
  3. NEORAL [Concomitant]
     Indication: LIVER TRANSPLANT
     Route: 048
  4. LAEVOLAC [Concomitant]
  5. KANRENOL [Concomitant]
     Route: 048
  6. MYCOPHENOLATE MOFETIL (CELLCEPT) [Concomitant]
     Route: 048
  7. MIRCERA [Concomitant]
     Indication: ANAEMIA
     Dosage: 75MG INJECTION SOLUTION,SUBCUTANEOUS OR INTRAVENOUS USE,1 SYRINGE PRE-FILLED,0.3 ML (250MCG/ML)
  8. CALCIUM SANDOZ [Suspect]
     Indication: HYPOCALCAEMIA
     Route: 048
     Dates: start: 20090901, end: 20110615
  9. ROCALTROL [Suspect]
     Indication: HYPOCALCAEMIA
     Route: 048
     Dates: start: 20090901, end: 20110615
  10. OMEPRAZOLE [Suspect]
     Indication: PROPHYLAXIS AGAINST GASTROINTESTINAL ULCER
     Route: 048
     Dates: start: 20090901, end: 20110615
  11. CATAPRESAN TTS [Concomitant]
  12. LASIX [Concomitant]
     Route: 048

REACTIONS (2)
  - HYPERCALCAEMIA [None]
  - IATROGENIC INJURY [None]
